FAERS Safety Report 9114820 (Version 1)
Quarter: 2013Q1

REPORT INFORMATION
  Report Type: Report from Study
  Country: ES (occurrence: ES)
  Receive Date: 20130208
  Receipt Date: 20130208
  Transmission Date: 20140127
  Serious: Yes (Hospitalization)
  Sender: FDA-Public Use
  Company Number: ES-PFIZER INC-2013050982

PATIENT
  Age: 56 Month
  Sex: Female

DRUGS (2)
  1. IBUPROFEN [Suspect]
     Indication: NASOPHARYNGITIS
     Dosage: 2 DF, UNK
  2. IBUPROFEN [Suspect]
     Indication: PYREXIA

REACTIONS (2)
  - Haematemesis [Unknown]
  - Gastrointestinal haemorrhage [Unknown]
